FAERS Safety Report 5132083-8 (Version None)
Quarter: 2006Q4

REPORT INFORMATION
  Report Type: 
  Country: None (occurrence: None)
  Receive Date: 20061017
  Receipt Date: 20061010
  Transmission Date: 20070319
  Serious: Yes (Other)
  Sender: FDA-Public Use
  Company Number: 229404

PATIENT
  Age: 76 Year
  Sex: Male
  Weight: 112.5 kg

DRUGS (7)
  1. LUCENTIS [Suspect]
     Indication: MACULAR DEGENERATION
     Dosage: INTRAVITREAL; SEE IMAGE
     Route: 050
     Dates: start: 20060717
  2. LUCENTIS [Suspect]
     Indication: MACULAR DEGENERATION
     Dosage: INTRAVITREAL; SEE IMAGE
     Route: 050
     Dates: start: 20060814
  3. LUCENTIS [Suspect]
     Indication: MACULAR DEGENERATION
     Dosage: INTRAVITREAL; SEE IMAGE
     Route: 050
     Dates: start: 20060918
  4. MICARDIS [Concomitant]
  5. GLIMEPIRIDE [Concomitant]
  6. FUROSEMIDE [Concomitant]
  7. COUMADIN [Concomitant]

REACTIONS (4)
  - CONDITION AGGRAVATED [None]
  - PHOTOPSIA [None]
  - VISION BLURRED [None]
  - VISUAL ACUITY REDUCED [None]
